FAERS Safety Report 16997886 (Version 1)
Quarter: 2019Q4

REPORT INFORMATION
  Report Type: Spontaneous
  Country: US (occurrence: US)
  Receive Date: 20191105
  Receipt Date: 20191105
  Transmission Date: 20200122
  Serious: No
  Sender: FDA-Public Use
  Company Number: US-RADIUS HEALTH INC.-2019US003130

PATIENT

DRUGS (1)
  1. TYMLOS [Suspect]
     Active Substance: ABALOPARATIDE
     Indication: OSTEOPOROSIS POSTMENOPAUSAL
     Dosage: UNK
     Route: 058
     Dates: start: 201908

REACTIONS (7)
  - Influenza like illness [Unknown]
  - Muscle spasms [Unknown]
  - Palpitations [Unknown]
  - Pain in extremity [Unknown]
  - Neck pain [Unknown]
  - Pain in jaw [Unknown]
  - Headache [Unknown]
